FAERS Safety Report 18073239 (Version 1)
Quarter: 2020Q3

REPORT INFORMATION
  Report Type: Other
  Country: US (occurrence: US)
  Receive Date: 20200727
  Receipt Date: 20200727
  Transmission Date: 20201103
  Serious: Yes (Other)
  Sender: FDA-Public Use
  Company Number: US-AMNEAL PHARMACEUTICALS-2020-AMRX-02028

PATIENT
  Sex: Female

DRUGS (1)
  1. ELURYNG [Suspect]
     Active Substance: ETHINYL ESTRADIOL\ETONOGESTREL
     Indication: PRODUCT USED FOR UNKNOWN INDICATION
     Dosage: 0.12/0.015MG/DAY
     Route: 067

REACTIONS (13)
  - Back pain [Unknown]
  - Suicidal ideation [Unknown]
  - Vulvovaginal discomfort [Unknown]
  - Breast tenderness [Unknown]
  - Migraine [Unknown]
  - Vulvovaginal dryness [Unknown]
  - Abdominal pain [Unknown]
  - Loss of libido [Unknown]
  - Depressed mood [Unknown]
  - Vulvovaginal pain [Unknown]
  - Product substitution issue [Unknown]
  - Nausea [Unknown]
  - Mood swings [Unknown]
